FAERS Safety Report 11470179 (Version 2)
Quarter: 2015Q3

REPORT INFORMATION
  Report Type: Spontaneous
  Country: US (occurrence: US)
  Receive Date: 20150903
  Receipt Date: 20150903
  Transmission Date: 20151125
  Serious: No
  Sender: FDA-Public Use
  Company Number: US-ELI_LILLY_AND_COMPANY-US201111005559

PATIENT
  Age: 61 Year
  Sex: Male
  Weight: 90.7 kg

DRUGS (2)
  1. CYMBALTA [Suspect]
     Active Substance: DULOXETINE HYDROCHLORIDE
     Dosage: 60 MG, SINGLE
  2. CYMBALTA [Suspect]
     Active Substance: DULOXETINE HYDROCHLORIDE
     Indication: OSTEOARTHRITIS
     Dosage: 30 MG, UNK

REACTIONS (3)
  - Incorrect dose administered [Recovered/Resolved]
  - Palpitations [Recovered/Resolved]
  - Hyperhidrosis [Unknown]
